FAERS Safety Report 5121893-9 (Version None)
Quarter: 2006Q4

REPORT INFORMATION
  Report Type: 
  Country: None (occurrence: None)
  Receive Date: 20061006
  Receipt Date: 20061005
  Transmission Date: 20070319
  Serious: Yes (Other)
  Sender: FDA-Public Use
  Company Number: CH-GLAXOSMITHKLINE-B0441057A

PATIENT
  Age: 45 Year
  Sex: Male

DRUGS (3)
  1. PANADOL [Suspect]
     Indication: ABDOMINAL PAIN
     Dosage: 1G FOUR TIMES PER DAY
     Route: 048
     Dates: start: 20060910, end: 20060911
  2. TEGRETOL [Suspect]
     Indication: EPILEPSY
     Dosage: 400MG TWICE PER DAY
     Route: 048
  3. LAMICTAL [Suspect]
     Indication: EPILEPSY
     Dosage: 50MG TWICE PER DAY
     Route: 048

REACTIONS (3)
  - ALANINE AMINOTRANSFERASE INCREASED [None]
  - ASPARTATE AMINOTRANSFERASE INCREASED [None]
  - HYPERBILIRUBINAEMIA [None]
